FAERS Safety Report 5936039-4 (Version None)
Quarter: 2008Q4

REPORT INFORMATION
  Report Type: 
  Country: None (occurrence: None)
  Receive Date: 20081030
  Receipt Date: 20081021
  Transmission Date: 20090506
  Serious: Yes (Other)
  Sender: FDA-Public Use
  Company Number: BR-PFIZER INC-2008025632

PATIENT
  Sex: Female
  Weight: 60 kg

DRUGS (3)
  1. DEPO-PROVERA SUSPENSION/INJ [Suspect]
     Indication: CONTRACEPTION
     Route: 030
     Dates: start: 20040101, end: 20040101
  2. DEPO-PROVERA SUSPENSION/INJ [Suspect]
     Route: 030
     Dates: start: 20070101, end: 20070101
  3. DEPO-PROVERA SUSPENSION/INJ [Suspect]
     Route: 030
     Dates: start: 20080711, end: 20080711

REACTIONS (9)
  - ABORTION SPONTANEOUS [None]
  - AMENORRHOEA [None]
  - INAPPROPRIATE SCHEDULE OF DRUG ADMINISTRATION [None]
  - INCORRECT DOSE ADMINISTERED [None]
  - INFLUENZA [None]
  - LIBIDO DECREASED [None]
  - PYREXIA [None]
  - UNINTENDED PREGNANCY [None]
  - WEIGHT INCREASED [None]
